FAERS Safety Report 5039839-0 (Version None)
Quarter: 2006Q2

REPORT INFORMATION
  Report Type: 
  Country: None (occurrence: None)
  Receive Date: 20060630
  Receipt Date: 20060503
  Transmission Date: 20061013
  Serious: Yes (Other)
  Sender: FDA-Public Use
  Company Number: GB-RB-3253-2006

PATIENT
  Age: 22 Year
  Sex: Female

DRUGS (3)
  1. BUPRENORPHINE HCL [Suspect]
     Indication: DRUG USE FOR UNKNOWN INDICATION
     Dosage: DISCONTINUED
     Route: 065
     Dates: start: 20060420, end: 20060421
  2. METHADONE HCL [Suspect]
     Indication: DETOXIFICATION
     Dosage: DOSAGE UNKNOWN
     Route: 065
  3. MEDICINALPRODUCT NOT SPECIFIED BY SENDER [Concomitant]
     Indication: ASTHMA
     Dosage: DOSAGE UNKNOWN
     Route: 055

REACTIONS (1)
  - ASTHMA [None]
